FAERS Safety Report 9407183 (Version 2)
Quarter: 2013Q3

REPORT INFORMATION
  Report Type: Spontaneous
  Country: US (occurrence: US)
  Receive Date: 20130718
  Receipt Date: 20130729
  Transmission Date: 20140515
  Serious: Yes (Other)
  Sender: FDA-Public Use
  Company Number: US-TEVA-419208USA

PATIENT
  Sex: Female

DRUGS (19)
  1. QVAR [Suspect]
  2. METFORMIN [Concomitant]
     Indication: DIABETES MELLITUS
  3. HYDROCHLOROTHIAZIDE [Concomitant]
     Indication: HYPERTENSION
  4. LISINOPRIL [Concomitant]
     Indication: HYPERTENSION
  5. ATENOLOL [Concomitant]
     Indication: HYPERTENSION
  6. ASPIRIN [Concomitant]
     Indication: PROPHYLAXIS
  7. LOVASTATIN [Concomitant]
     Indication: BLOOD CHOLESTEROL INCREASED
  8. CLARITIN [Concomitant]
     Indication: HYPERSENSITIVITY
  9. TRIAMCINOLONE [Concomitant]
     Indication: BURNING SENSATION
  10. CALCIUM WITH VITAMIN D [Concomitant]
     Indication: VITAMIN SUPPLEMENTATION
  11. PRO-AIR [Concomitant]
     Indication: ASTHMA
  12. OMEPRAZOLE [Concomitant]
     Indication: GASTROOESOPHAGEAL REFLUX DISEASE
  13. NEUROGENIC PLUS [Concomitant]
     Indication: ARTHRITIS
  14. CAPSAICIN [Concomitant]
     Indication: DIABETIC NEUROPATHY
  15. LYRICA [Concomitant]
     Indication: DIABETIC NEUROPATHY
  16. CLOTRIMAZOLE [Concomitant]
     Indication: NAIL DISORDER
  17. OMEGA 3 FISH OIL [Concomitant]
     Indication: ARTHRITIS
  18. SINEMET [Concomitant]
     Indication: MUSCLE CONTRACTIONS INVOLUNTARY
  19. ARTIFICIAL TEARS [Concomitant]
     Indication: EYE DISORDER

REACTIONS (1)
  - Cerebrovascular accident [Unknown]
